FAERS Safety Report 7291108-4 (Version None)
Quarter: 2011Q1

REPORT INFORMATION
  Report Type: 
  Country: None (occurrence: None)
  Receive Date: 20110214
  Receipt Date: 20110119
  Transmission Date: 20110831
  Serious: Yes (Hospitalization, Other)
  Sender: FDA-Public Use
  Company Number: PHHY2010US80889

PATIENT
  Sex: Female

DRUGS (5)
  1. DILAUDID [Concomitant]
     Route: 048
  2. AFINITOR [Suspect]
     Indication: RENAL CELL CARCINOMA
     Dosage: 10 MG, QD
     Route: 048
     Dates: start: 20101008
  3. MS CONTIN [Concomitant]
     Route: 048
  4. DOCETAXEL [Concomitant]
  5. BEVACIZUMAB [Concomitant]

REACTIONS (3)
  - METASTASES TO BONE [None]
  - SMALL INTESTINAL OBSTRUCTION [None]
  - PAIN [None]
